FAERS Safety Report 17000360 (Version 1)
Quarter: 2019Q4

REPORT INFORMATION
  Report Type: Spontaneous
  Country: CN (occurrence: CN)
  Receive Date: 20191106
  Receipt Date: 20191106
  Transmission Date: 20200122
  Serious: Yes (Life-Threatening, Other)
  Sender: FDA-Public Use
  Company Number: CN-PFIZER INC-2019477984

PATIENT
  Age: 88 Year
  Sex: Female

DRUGS (2)
  1. CORDARONE [Suspect]
     Active Substance: AMIODARONE HYDROCHLORIDE
     Indication: ARRHYTHMIA
     Dosage: 0.2 G, 3X/DAY
     Route: 048
     Dates: start: 20191006, end: 20191009
  2. BETALOC [METOPROLOL SUCCINATE] [Concomitant]
     Indication: ARRHYTHMIA
     Dosage: 6.25 MG, 2X/DAY
     Route: 048
     Dates: start: 20191009, end: 20191009

REACTIONS (2)
  - Bradycardia [Recovering/Resolving]
  - Chest pain [Recovering/Resolving]

NARRATIVE: CASE EVENT DATE: 20191013
